FAERS Safety Report 9555780 (Version 1)
Quarter: 2013Q3

REPORT INFORMATION
  Report Type: Spontaneous
  Country: US (occurrence: None)
  Receive Date: 20130815
  Receipt Date: 20130815
  Transmission Date: 20140515
  Serious: Yes (Other)
  Sender: FDA-Public Use
  Company Number: ADR-2013-00758

PATIENT
  Age: 52 Year
  Sex: Female

DRUGS (3)
  1. LIORESAL [Suspect]
     Indication: MUSCLE SPASTICITY
     Dosage: /DAY
  2. LIORESAL [Suspect]
     Indication: MULTIPLE SCLEROSIS
     Dosage: /DAY
  3. ORAL BACLOFEN [Concomitant]

REACTIONS (1)
  - Hallucination [None]
